FAERS Safety Report 22161612 (Version 7)
Quarter: 2023Q4

REPORT INFORMATION
  Report Type: Report from Study
  Country: FR (occurrence: FR)
  Receive Date: 20230331
  Receipt Date: 20231108
  Transmission Date: 20240110
  Serious: Yes (Other)
  Sender: FDA-Public Use
  Company Number: FR-KOREA IPSEN Pharma-2023-07260

PATIENT

DRUGS (21)
  1. CABOZANTINIB [Suspect]
     Active Substance: CABOZANTINIB
     Indication: Renal cell carcinoma
     Dosage: 40 MG, QD
     Route: 048
     Dates: start: 20221122, end: 20221130
  2. CABOZANTINIB [Suspect]
     Active Substance: CABOZANTINIB
     Dosage: 40 MG, QD
     Route: 048
     Dates: start: 20221213, end: 20230327
  3. CABOZANTINIB [Suspect]
     Active Substance: CABOZANTINIB
     Dosage: 20 MG, QD
     Route: 048
     Dates: start: 20230328, end: 20230605
  4. CABOZANTINIB [Suspect]
     Active Substance: CABOZANTINIB
     Dosage: 20 MG, QD
     Route: 048
     Dates: start: 20230612, end: 20230710
  5. CABOZANTINIB [Suspect]
     Active Substance: CABOZANTINIB
     Dosage: 40 MG, QD
     Route: 048
     Dates: start: 20230725, end: 20230902
  6. CABOZANTINIB [Suspect]
     Active Substance: CABOZANTINIB
     Dosage: 20 MG, QD
     Route: 048
     Dates: start: 20230903
  7. NIVOLUMAB [Suspect]
     Active Substance: NIVOLUMAB
     Indication: Renal cell carcinoma
     Dosage: 240 MG, ONCE
     Route: 042
     Dates: start: 20221122
  8. NIVOLUMAB [Suspect]
     Active Substance: NIVOLUMAB
     Dosage: 240 MG, ONCE
     Route: 042
     Dates: start: 20221220
  9. NIVOLUMAB [Suspect]
     Active Substance: NIVOLUMAB
     Dosage: 240 MG, ONCE
     Route: 042
     Dates: start: 20230103
  10. NIVOLUMAB [Suspect]
     Active Substance: NIVOLUMAB
     Dosage: 240 MG, ONCE
     Route: 042
     Dates: start: 20230117
  11. NIVOLUMAB [Suspect]
     Active Substance: NIVOLUMAB
     Dosage: 240 MG, ONCE
     Route: 042
     Dates: start: 20230131
  12. NIVOLUMAB [Suspect]
     Active Substance: NIVOLUMAB
     Dosage: 240 MG, ONCE
     Route: 042
     Dates: start: 20230214
  13. NIVOLUMAB [Suspect]
     Active Substance: NIVOLUMAB
     Dosage: 240 MG, ONCE
     Route: 042
     Dates: start: 20230228
  14. NIVOLUMAB [Suspect]
     Active Substance: NIVOLUMAB
     Dosage: 240 MG, ONCE
     Route: 042
     Dates: start: 20230314
  15. NIVOLUMAB [Suspect]
     Active Substance: NIVOLUMAB
     Dosage: 240 MG, ONCE
     Route: 042
     Dates: start: 20230328
  16. NIVOLUMAB [Suspect]
     Active Substance: NIVOLUMAB
     Dosage: 240 MG, ONCE
     Route: 042
     Dates: start: 20230411
  17. NIVOLUMAB [Suspect]
     Active Substance: NIVOLUMAB
     Dosage: 240 MG, ONCE
     Route: 042
     Dates: start: 20230425
  18. NIVOLUMAB [Suspect]
     Active Substance: NIVOLUMAB
     Dosage: 240 MG, ONCE
     Route: 042
     Dates: start: 20230509
  19. NIVOLUMAB [Suspect]
     Active Substance: NIVOLUMAB
     Dosage: 240 MG, ONCE
     Route: 042
     Dates: start: 20230523
  20. NIVOLUMAB [Suspect]
     Active Substance: NIVOLUMAB
     Dosage: 240 MG, ONCE
     Route: 042
  21. AUGMENTIN [Concomitant]
     Active Substance: AMOXICILLIN\CLAVULANATE POTASSIUM
     Indication: Nodule
     Dosage: UNK
     Route: 048
     Dates: start: 20221117, end: 20221127

REACTIONS (13)
  - Erythema [Recovered/Resolved]
  - Rash erythematous [Recovered/Resolved]
  - Chills [Recovered/Resolved]
  - Hair colour changes [Not Recovered/Not Resolved]
  - Faeces discoloured [Recovered/Resolved]
  - Temperature intolerance [Not Recovered/Not Resolved]
  - Dysphagia [Recovering/Resolving]
  - Abdominal pain upper [Recovered/Resolved]
  - Abdominal pain upper [Recovering/Resolving]
  - Dysgeusia [Not Recovered/Not Resolved]
  - Asthenia [Recovered/Resolved]
  - Palmar-plantar erythrodysaesthesia syndrome [Not Recovered/Not Resolved]
  - Stomatitis [Recovered/Resolved]

NARRATIVE: CASE EVENT DATE: 20221127
